FAERS Safety Report 12482856 (Version 1)
Quarter: 2016Q2

REPORT INFORMATION
  Report Type: Spontaneous
  Country: DE (occurrence: DE)
  Receive Date: 20160620
  Receipt Date: 20160620
  Transmission Date: 20160815
  Serious: Yes (Hospitalization)
  Sender: FDA-Public Use
  Company Number: DE-009507513-1606DEU005819

PATIENT
  Age: 33 Year
  Sex: Female

DRUGS (2)
  1. REMERGIL [Suspect]
     Active Substance: MIRTAZAPINE
     Dosage: 15 MG, QD (1 DAY INTERVAL)
     Route: 048
     Dates: end: 20150429
  2. RISPERIDONE. [Concomitant]
     Active Substance: RISPERIDONE
     Dosage: 2 MG, QD (1 DAY INTERVAL)
     Route: 048
     Dates: start: 20150411, end: 20150505

REACTIONS (4)
  - Nightmare [Recovered/Resolved]
  - Restlessness [Recovered/Resolved]
  - Confusional state [Recovered/Resolved]
  - Abnormal behaviour [Recovered/Resolved]

NARRATIVE: CASE EVENT DATE: 20150429
